FAERS Safety Report 24352374 (Version 1)
Quarter: 2024Q3

REPORT INFORMATION
  Report Type: Spontaneous
  Country: US (occurrence: US)
  Receive Date: 20240923
  Receipt Date: 20240923
  Transmission Date: 20241017
  Serious: No
  Sender: PAREXEL
  Company Number: US-Stemline Therapeutics, Inc.-2024ST002895

PATIENT
  Age: 31 Year
  Sex: Female

DRUGS (1)
  1. ORSERDU [Suspect]
     Active Substance: ELACESTRANT
     Indication: Product used for unknown indication
     Dates: start: 20231227

REACTIONS (7)
  - Migraine [Unknown]
  - Pain [Unknown]
  - Metastases to bone [Unknown]
  - Metastases to liver [Unknown]
  - Myalgia [Unknown]
  - Arthralgia [Unknown]
  - Disease progression [Unknown]
